FAERS Safety Report 9501211 (Version 1)
Quarter: 2013Q1

REPORT INFORMATION
  Report Type: Spontaneous
  Country: US (occurrence: None)
  Receive Date: 20130118
  Receipt Date: 20130118
  Transmission Date: 20140127
  Serious: Yes (Other)
  Sender: FDA-Public Use
  Company Number: A-NJ2012-60402

PATIENT
  Age: 70 Year
  Sex: Female

DRUGS (2)
  1. TRACLEER  (BOSENTAN) [Suspect]
     Indication: PULMONARY ARTERIAL HYPERTENSION
     Route: 048
     Dates: start: 20111031
  2. ADCIRCA (TADALAFIL) [Concomitant]

REACTIONS (4)
  - Pneumonia [None]
  - Headache [None]
  - Decreased appetite [None]
  - Pyrexia [None]
